FAERS Safety Report 18855798 (Version 2)
Quarter: 2021Q1

REPORT INFORMATION
  Report Type: Other
  Country: FR (occurrence: FR)
  Receive Date: 20210205
  Receipt Date: 20210212
  Transmission Date: 20210420
  Serious: Yes (Other)
  Sender: FDA-Public Use
  Company Number: FR-ROCHE-2764228

PATIENT
  Age: 77 Year
  Sex: Male
  Weight: 65 kg

DRUGS (10)
  1. ABASAGLAR [Concomitant]
     Active Substance: INSULIN GLARGINE
  2. BEVACIZUMAB. [Suspect]
     Active Substance: BEVACIZUMAB
     Indication: HEPATOCELLULAR CARCINOMA
     Dosage: CYCLE 1
     Route: 042
     Dates: start: 20201127
  3. ALDACTONE [Concomitant]
     Active Substance: SPIRONOLACTONE
  4. ATENOLOL. [Concomitant]
     Active Substance: ATENOLOL
  5. ATEZOLIZUMAB. [Suspect]
     Active Substance: ATEZOLIZUMAB
     Indication: HEPATOCELLULAR CARCINOMA
     Dosage: CYCLE 1
     Route: 042
     Dates: start: 20201127
  6. BRILIQUE [Concomitant]
     Active Substance: TICAGRELOR
  7. PANTOPRAZOLE [Concomitant]
     Active Substance: PANTOPRAZOLE
  8. HUMALOG [Concomitant]
     Active Substance: INSULIN LISPRO
  9. KARDEGIC [Concomitant]
     Active Substance: ASPIRIN DL-LYSINE
  10. PERINDOPRIL [Concomitant]
     Active Substance: PERINDOPRIL

REACTIONS (1)
  - Cerebrovascular accident [Unknown]
